FAERS Safety Report 8881187 (Version 1)
Quarter: 2012Q4

REPORT INFORMATION
  Report Type: 
  Country: BR (occurrence: BR)
  Receive Date: 20121031
  Receipt Date: 20121031
  Transmission Date: 20130627
  Serious: Yes (Death, Other)
  Sender: FDA-Public Use
  Company Number: PHHY2012BR097792

PATIENT
  Age: 88 Year
  Sex: Female

DRUGS (1)
  1. RASILEZ [Suspect]
     Indication: CARDIOMEGALY
     Dosage: 150 mg, A day
     Route: 048

REACTIONS (5)
  - Multi-organ failure [Fatal]
  - Herpes zoster [Recovered/Resolved]
  - Immunodeficiency [Unknown]
  - Bronchopneumonia [Unknown]
  - Cardio-respiratory arrest [Unknown]
